FAERS Safety Report 9132407 (Version 1)
Quarter: 2013Q1

REPORT INFORMATION
  Report Type: Spontaneous
  Country: DE (occurrence: CA)
  Receive Date: 20130301
  Receipt Date: 20130301
  Transmission Date: 20140127
  Serious: Yes (Other)
  Sender: FDA-Public Use
  Company Number: CA-FRI-1000043022

PATIENT
  Sex: Female

DRUGS (1)
  1. ROFLUMILAST [Suspect]
     Dosage: 1 TABLET EVERY 3 OR 4 DAYS
     Route: 048
     Dates: start: 20120907

REACTIONS (3)
  - Pneumonia [Unknown]
  - Abdominal discomfort [Unknown]
  - Drug administration error [Unknown]
